FAERS Safety Report 9147425 (Version 2)
Quarter: 2013Q1

REPORT INFORMATION
  Report Type: Spontaneous
  Country: CZ (occurrence: CZ)
  Receive Date: 20130307
  Receipt Date: 20130328
  Transmission Date: 20140127
  Serious: Yes (Life-Threatening, Hospitalization, Disabling, Other)
  Sender: FDA-Public Use
  Company Number: CZ-GLAXOSMITHKLINE-B0873060A

PATIENT
  Sex: Male
  Weight: 73 kg

DRUGS (4)
  1. VOTRIENT [Suspect]
     Indication: METASTASES TO LUNG
     Dosage: 400MG TWICE PER DAY
     Route: 048
     Dates: start: 20130104, end: 20130131
  2. CHONDROSULF [Concomitant]
  3. PERINDOPRIL [Concomitant]
     Indication: HYPERTENSION
     Dosage: 4MG PER DAY
     Route: 048
  4. ZOFRAN ZYDIS [Concomitant]
     Dosage: 8MG TWICE PER DAY
     Route: 048

REACTIONS (7)
  - Peptic ulcer [Unknown]
  - Dyspepsia [Unknown]
  - Hepatotoxicity [Unknown]
  - Jaundice [Unknown]
  - Decreased appetite [Unknown]
  - Vomiting [Unknown]
  - Nausea [Unknown]
